FAERS Safety Report 24741763 (Version 1)
Quarter: 2024Q4

REPORT INFORMATION
  Report Type: Spontaneous
  Country: IN (occurrence: None)
  Receive Date: 20241217
  Receipt Date: 20241217
  Transmission Date: 20250115
  Serious: Yes (Hospitalization)
  Sender: ENCUBE ETHICALS
  Company Number: IN-Encube-001454

PATIENT
  Age: 38 Year
  Sex: Male

DRUGS (2)
  1. DICLOFENAC SODIUM [Suspect]
     Active Substance: DICLOFENAC SODIUM
     Indication: Abdominal pain
     Dosage: INJECTION
  2. DICLOFENAC SODIUM [Suspect]
     Active Substance: DICLOFENAC SODIUM
     Indication: Dysuria
     Dosage: INJECTION

REACTIONS (3)
  - Peripheral ischaemia [Recovered/Resolved with Sequelae]
  - Off label use [Unknown]
  - Incorrect route of product administration [Unknown]
